FAERS Safety Report 9817188 (Version 2)
Quarter: 2014Q1

REPORT INFORMATION
  Report Type: Spontaneous
  Country: US (occurrence: US)
  Receive Date: 20140114
  Receipt Date: 20140124
  Transmission Date: 20141002
  Serious: No
  Sender: FDA-Public Use
  Company Number: US-GILEAD-2014-0092200

PATIENT
  Sex: Female
  Weight: 116 kg

DRUGS (2)
  1. LETAIRIS [Suspect]
     Indication: PRODUCT USED FOR UNKNOWN INDICATION
     Dosage: 5 MG, QD
     Route: 048
     Dates: start: 20130626
  2. TYVASO [Suspect]
     Indication: COR PULMONALE CHRONIC
     Dosage: 0.6 MG/ML, 3-9 BREATHS QID
     Route: 055
     Dates: start: 20130701

REACTIONS (2)
  - Haemoglobin decreased [Unknown]
  - Anaemia [Unknown]
